APPROVED DRUG PRODUCT: ROFLUMILAST
Active Ingredient: ROFLUMILAST
Strength: 250MCG
Dosage Form/Route: TABLET;ORAL
Application: A212490 | Product #001 | TE Code: AB
Applicant: ALKEM LABORATORIES LTD
Approved: Apr 18, 2023 | RLD: No | RS: No | Type: RX